FAERS Safety Report 23885804 (Version 1)
Quarter: 2024Q2

REPORT INFORMATION
  Report Type: Spontaneous
  Country: JP (occurrence: JP)
  Receive Date: 20240522
  Receipt Date: 20240522
  Transmission Date: 20240716
  Serious: Yes (Other)
  Sender: FDA-Public Use
  Company Number: JP-BAUSCH-BL-2024-007820

PATIENT
  Age: 53 Year
  Sex: Female

DRUGS (2)
  1. MINOCYCLINE [Suspect]
     Active Substance: MINOCYCLINE HYDROCHLORIDE
     Indication: Dermatosis
     Route: 048
  2. NICOTINAMIDE [Concomitant]
     Active Substance: NIACINAMIDE
     Indication: Dermatosis

REACTIONS (1)
  - Pneumonia [Unknown]
